FAERS Safety Report 7276204-X (Version None)
Quarter: 2011Q1

REPORT INFORMATION
  Report Type: 
  Country: None (occurrence: None)
  Receive Date: 20110204
  Receipt Date: 20110126
  Transmission Date: 20110831
  Serious: Yes (Other)
  Sender: FDA-Public Use
  Company Number: PHHY2011US06929

PATIENT
  Sex: Female

DRUGS (3)
  1. VENPAT [Concomitant]
     Dosage: UNK
  2. KEPPRA [Concomitant]
     Dosage: UNK
  3. AFINITOR [Suspect]
     Indication: ASTROCYTOMA
     Dosage: 5 MG
     Route: 048
     Dates: start: 20110108, end: 20110126

REACTIONS (1)
  - CONVULSION [None]
